FAERS Safety Report 21984312 (Version 1)
Quarter: 2023Q1

REPORT INFORMATION
  Report Type: Spontaneous
  Country: US (occurrence: None)
  Receive Date: 20230209
  Receipt Date: 20230209
  Transmission Date: 20230417
  Serious: Yes (Hospitalization, Disabling)
  Sender: FDA-Public Use
  Company Number: None

PATIENT
  Age: 30 Year
  Sex: Male

DRUGS (2)
  1. TACROLIMUS [Suspect]
     Active Substance: TACROLIMUS
     Indication: Renal transplant
     Dosage: 1MG/2 MG TWICE DAILY ORAL
     Route: 048
     Dates: start: 20191101, end: 20200901
  2. MYCOPHENOLIC ACID [Suspect]
     Active Substance: MYCOPHENOLIC ACID
     Dosage: 720MG/540MG TWICE DAILY ORAL?
     Route: 048
     Dates: start: 20200901

REACTIONS (2)
  - Urinary tract infection [None]
  - Condition aggravated [None]

NARRATIVE: CASE EVENT DATE: 20230110
